FAERS Safety Report 25371799 (Version 1)
Quarter: 2025Q2

REPORT INFORMATION
  Report Type: Spontaneous
  Country: RS (occurrence: RS)
  Receive Date: 20250529
  Receipt Date: 20250529
  Transmission Date: 20250717
  Serious: Yes (Hospitalization, Other)
  Sender: BOEHRINGER INGELHEIM
  Company Number: RS-BoehringerIngelheim-2025-BI-072956

PATIENT
  Age: 67 Year
  Sex: Male

DRUGS (2)
  1. JARDIANCE [Suspect]
     Active Substance: EMPAGLIFLOZIN
     Indication: Type 2 diabetes mellitus
  2. INSULIN NOS [Concomitant]
     Active Substance: INSULIN NOS
     Indication: Product used for unknown indication

REACTIONS (3)
  - Sepsis [Unknown]
  - Euglycaemic diabetic ketoacidosis [Recovered/Resolved]
  - Osteomyelitis [Unknown]

NARRATIVE: CASE EVENT DATE: 20250521
